FAERS Safety Report 23625980 (Version 1)
Quarter: 2024Q1

REPORT INFORMATION
  Report Type: Spontaneous
  Country: GB (occurrence: GB)
  Receive Date: 20240313
  Receipt Date: 20240313
  Transmission Date: 20240409
  Serious: Yes (Other)
  Sender: FDA-Public Use
  Company Number: GB-SUN PHARMACEUTICAL INDUSTRIES LTD-2024RR-435950

PATIENT
  Age: 34 Year
  Sex: Female
  Weight: 66.6 kg

DRUGS (5)
  1. VENLAFAXINE [Suspect]
     Active Substance: VENLAFAXINE HYDROCHLORIDE
     Indication: Product used for unknown indication
     Dosage: ONE TO BE TAKEN TWICE A DAY
     Route: 065
     Dates: start: 20240209
  2. ESCITALOPRAM [Concomitant]
     Active Substance: ESCITALOPRAM OXALATE
     Indication: Product used for unknown indication
     Dosage: TAKE HALF A TABLET IN THE MORNING FOR 1 WEEK, THEN INCREASE TO ONE TABLET IN THE MORNING
     Route: 065
     Dates: start: 20231221
  3. MIRTAZAPINE [Concomitant]
     Active Substance: MIRTAZAPINE
     Indication: Product used for unknown indication
     Dosage: ONE TO BE TAKEN AT NIGHT
     Route: 065
     Dates: start: 20231221, end: 20240209
  4. MORPHINE [Concomitant]
     Active Substance: MORPHINE
     Indication: Product used for unknown indication
     Dosage: 100 MILLILITER
     Route: 065
     Dates: start: 20240216
  5. PREGABALIN [Concomitant]
     Active Substance: PREGABALIN
     Indication: Fibromyalgia
     Dosage: ONE TO BE TAKEN TWICE A DAY
     Route: 065
     Dates: start: 20231221

REACTIONS (1)
  - Aggression [Recovered/Resolved]
